FAERS Safety Report 6306700-0 (Version None)
Quarter: 2009Q3

REPORT INFORMATION
  Report Type: 
  Country: None (occurrence: None)
  Receive Date: 20090812
  Receipt Date: 20090729
  Transmission Date: 20100115
  Serious: No
  Sender: FDA-Public Use
  Company Number: A0781043A

PATIENT
  Age: 58 Year
  Sex: Female

DRUGS (4)
  1. VERAMYST [Suspect]
     Dosage: 2PUFF TWICE PER DAY
     Route: 045
     Dates: start: 20081001, end: 20090428
  2. LOPRESSOR [Concomitant]
  3. LEXAPRO [Concomitant]
  4. BUSPAR [Concomitant]

REACTIONS (3)
  - DRUG INEFFECTIVE [None]
  - MEDICATION ERROR [None]
  - PRODUCT QUALITY ISSUE [None]
